FAERS Safety Report 25906386 (Version 1)
Quarter: 2025Q4

REPORT INFORMATION
  Report Type: Spontaneous
  Country: EU (occurrence: EU)
  Receive Date: 20251010
  Receipt Date: 20251010
  Transmission Date: 20260118
  Serious: Yes (Death, Hospitalization)
  Sender: EISAI
  Company Number: None

PATIENT
  Age: 51 Year
  Sex: Female

DRUGS (1)
  1. ERIBULIN MESYLATE [Suspect]
     Active Substance: ERIBULIN MESYLATE
     Indication: Breast cancer stage IV
     Route: 042
     Dates: start: 20240326

REACTIONS (2)
  - Jaundice cholestatic [Fatal]
  - Pancytopenia [Fatal]

NARRATIVE: CASE EVENT DATE: 20240331
